FAERS Safety Report 5884048-6 (Version None)
Quarter: 2008Q3

REPORT INFORMATION
  Report Type: 
  Country: None (occurrence: None)
  Receive Date: 20080911
  Receipt Date: 20080903
  Transmission Date: 20090109
  Serious: No
  Sender: FDA-Public Use
  Company Number: 2008-182350-NL

PATIENT
  Age: 44 Year
  Sex: Female

DRUGS (9)
  1. DEXAMETHASONE [Suspect]
     Indication: PROPHYLAXIS OF NAUSEA AND VOMITING
     Dosage: 20 MG ONCE INTRAVENOUS (NOS)
     Route: 042
     Dates: start: 20080612, end: 20080612
  2. DEXAMETHASONE [Suspect]
     Indication: PROPHYLAXIS OF NAUSEA AND VOMITING
     Dosage: 20 MG ONCE INTRAVENOUS (NOS)
     Route: 042
     Dates: start: 20080703, end: 20080703
  3. DEXAMETHASONE [Suspect]
     Indication: PROPHYLAXIS OF NAUSEA AND VOMITING
     Dosage: 20 MG ONCE INTRAVENOUS (NOS)
     Route: 042
     Dates: start: 20080710, end: 20080710
  4. DEXAMETHASONE [Suspect]
     Indication: PROPHYLAXIS OF NAUSEA AND VOMITING
     Dosage: 20 MG ONCE INTRAVENOUS (NOS)
     Route: 042
     Dates: start: 20080718, end: 20080718
  5. DEXAMETHASONE [Suspect]
     Indication: PROPHYLAXIS OF NAUSEA AND VOMITING
     Dosage: 20 MG ONCE INTRAVENOUS (NOS)
     Route: 042
     Dates: start: 20080820, end: 20080820
  6. CISPLATIN [Concomitant]
  7. TROPISETRON [Concomitant]
  8. METHADONE HCL [Concomitant]
  9. MANNITOL [Concomitant]

REACTIONS (7)
  - DYSPNOEA [None]
  - EYELID OEDEMA [None]
  - GENERALISED ERYTHEMA [None]
  - MUSCLE SPASMS [None]
  - PARAESTHESIA [None]
  - PHARYNGEAL OEDEMA [None]
  - SUFFOCATION FEELING [None]
